FAERS Safety Report 5928829-9 (Version None)
Quarter: 2008Q4

REPORT INFORMATION
  Report Type: 
  Country: None (occurrence: None)
  Receive Date: 20081020
  Receipt Date: 20081003
  Transmission Date: 20090506
  Serious: Yes (Death)
  Sender: FDA-Public Use
  Company Number: IDA-00138

PATIENT
  Age: 7 Year

DRUGS (1)
  1. PROPRANOLOL [Suspect]
     Dosage: ORAL FORMULATION: TABLET
     Route: 048

REACTIONS (1)
  - ACCIDENTAL DRUG INTAKE BY CHILD [None]
